FAERS Safety Report 4376958-6 (Version None)
Quarter: 2004Q2

REPORT INFORMATION
  Report Type: 
  Country: None (occurrence: None)
  Receive Date: 20040614
  Receipt Date: 20040525
  Transmission Date: 20050107
  Serious: Yes (Hospitalization)
  Sender: FDA-Public Use
  Company Number: AT-AMGEN-US078177

PATIENT
  Sex: Male
  Weight: 80 kg

DRUGS (14)
  1. ENBREL [Suspect]
     Indication: DRUG USE FOR UNKNOWN INDICATION
     Route: 058
     Dates: start: 20031227
  2. PLAVIX [Concomitant]
  3. ASPIRIN [Concomitant]
  4. MORPHINE [Concomitant]
  5. PANTOPRAZOLE [Concomitant]
  6. ATACAND [Concomitant]
  7. SELOKEN [Concomitant]
  8. NICORANDIL [Concomitant]
  9. ATORVASTATIN CALCIUM [Concomitant]
  10. HYDROMORPHONE HCL [Concomitant]
  11. DURAGESIC [Concomitant]
  12. FLUTICASONE/SALMETEROL [Concomitant]
  13. SPIRIVA [Concomitant]
  14. SINEQUAN [Concomitant]

REACTIONS (1)
  - JUGULAR VEIN THROMBOSIS [None]
